FAERS Safety Report 23054578 (Version 2)
Quarter: 2023Q4

REPORT INFORMATION
  Report Type: Spontaneous
  Country: DE (occurrence: DE)
  Receive Date: 20231011
  Receipt Date: 20231024
  Transmission Date: 20240110
  Serious: Yes (Life-Threatening)
  Sender: FDA-Public Use
  Company Number: DE-002147023-NVSC2023DE215058

PATIENT
  Age: 26 Year
  Sex: Male

DRUGS (2)
  1. XOLAIR [Suspect]
     Active Substance: OMALIZUMAB
     Indication: Urticaria
     Dosage: 300 MG EVERY 4 WEEKS
     Route: 058
     Dates: start: 20230328, end: 2023
  2. XOLAIR [Suspect]
     Active Substance: OMALIZUMAB
     Dosage: UNK (4TH ADMINISTRATION)
     Route: 058
     Dates: start: 20230328

REACTIONS (1)
  - Anaphylactic reaction [Recovered/Resolved]
